FAERS Safety Report 23935662 (Version 1)
Quarter: 2024Q2

REPORT INFORMATION
  Report Type: Spontaneous
  Country: CN (occurrence: None)
  Receive Date: 20240604
  Receipt Date: 20240604
  Transmission Date: 20240715
  Serious: Yes (Hospitalization, Other)
  Sender: FDA-Public Use
  Company Number: 2024A125454

PATIENT
  Age: 26292 Day
  Sex: Male

DRUGS (4)
  1. DURVALUMAB [Suspect]
     Active Substance: DURVALUMAB
     Indication: Targeted cancer therapy
     Route: 041
     Dates: start: 20240419, end: 20240419
  2. GIMERACIL\OTERACIL\TEGAFUR [Suspect]
     Active Substance: GIMERACIL\OTERACIL POTASSIUM\TEGAFUR
     Indication: Targeted cancer therapy
     Route: 048
     Dates: start: 20240419, end: 20240502
  3. PACLITAXEL [Suspect]
     Active Substance: PACLITAXEL
     Indication: Targeted cancer therapy
     Route: 041
     Dates: start: 20240418, end: 20240418
  4. PACLITAXEL [Suspect]
     Active Substance: PACLITAXEL
     Indication: Targeted cancer therapy
     Route: 041
     Dates: start: 20240427, end: 20240427

REACTIONS (1)
  - Myelosuppression [Recovering/Resolving]

NARRATIVE: CASE EVENT DATE: 20240424
